FAERS Safety Report 18582308 (Version 4)
Quarter: 2021Q1

REPORT INFORMATION
  Report Type: Report from Study
  Country: US (occurrence: US)
  Receive Date: 20201205
  Receipt Date: 20210313
  Transmission Date: 20210419
  Serious: Yes (Other)
  Sender: FDA-Public Use
  Company Number: NVSC2020US321864

PATIENT
  Age: 66 Year
  Sex: Female

DRUGS (2)
  1. KISQALI FEMARA CO?PACK [Suspect]
     Active Substance: LETROZOLE\RIBOCICLIB
     Dosage: 600 MG, QD
     Route: 048
     Dates: start: 20210203
  2. KISQALI FEMARA CO?PACK [Suspect]
     Active Substance: LETROZOLE\RIBOCICLIB
     Indication: BREAST CANCER METASTATIC
     Dosage: 600 MG, QD
     Route: 048

REACTIONS (4)
  - Hepatic enzyme increased [Recovered/Resolved]
  - Neutropenia [Not Recovered/Not Resolved]
  - White blood cell count decreased [Not Recovered/Not Resolved]
  - Dysphagia [Recovered/Resolved]

NARRATIVE: CASE EVENT DATE: 20201231
